FAERS Safety Report 23644852 (Version 7)
Quarter: 2024Q2

REPORT INFORMATION
  Report Type: Spontaneous
  Country: FR (occurrence: FR)
  Receive Date: 20240318
  Receipt Date: 20240613
  Transmission Date: 20240715
  Serious: Yes (Life-Threatening, Other)
  Sender: FDA-Public Use
  Company Number: FR-002147023-PHHY2018FR113459

PATIENT
  Age: 69 Year
  Sex: Male
  Weight: 66 kg

DRUGS (86)
  1. AMOXICILLIN [Suspect]
     Active Substance: AMOXICILLIN
     Indication: Infection
     Dosage: 1000 MG, QD
     Route: 048
     Dates: end: 201806
  2. AMOXICILLIN [Suspect]
     Active Substance: AMOXICILLIN
     Indication: Infection
     Dosage: 1000 MG, QD
     Route: 048
     Dates: start: 201806
  3. APIXABAN [Suspect]
     Active Substance: APIXABAN
     Dosage: 1 DOSAGE FORM, QD
     Route: 048
  4. APIXABAN [Suspect]
     Active Substance: APIXABAN
     Dosage: 1 DOSAGE FORM, QD
     Route: 065
  5. APIXABAN [Suspect]
     Active Substance: APIXABAN
     Indication: Product used for unknown indication
     Dosage: 2 DOSAGE FORM, QD
     Route: 065
  6. APIXABAN [Suspect]
     Active Substance: APIXABAN
     Dosage: 2 DOSAGE FORM, BID
     Route: 065
  7. APIXABAN [Suspect]
     Active Substance: APIXABAN
     Dosage: 2 DOSAGE FORM, BID
     Route: 048
  8. APIXABAN [Suspect]
     Active Substance: APIXABAN
     Dosage: 2 DOSAGE FORM, BID
     Route: 065
  9. APIXABAN [Suspect]
     Active Substance: APIXABAN
     Dosage: 2 DOSAGE FORM, BID
     Route: 065
  10. APIXABAN [Suspect]
     Active Substance: APIXABAN
     Dosage: 2 DOSAGE FORM, BID
     Route: 065
  11. BACLOFEN [Suspect]
     Active Substance: BACLOFEN
     Indication: Product used for unknown indication
     Dosage: 1 DF, QD
     Route: 065
  12. BACLOFEN [Suspect]
     Active Substance: BACLOFEN
     Dosage: 2 DF,FORM (3/DAY)
     Route: 065
  13. BACLOFEN [Suspect]
     Active Substance: BACLOFEN
     Dosage: 6 DF, QD (2 DF, TID)
     Route: 065
  14. BACTRIM [Suspect]
     Active Substance: SULFAMETHOXAZOLE\TRIMETHOPRIM
     Indication: Pneumocystis jirovecii pneumonia
     Dosage: 1 DF, QD
     Route: 048
     Dates: end: 201806
  15. BACTRIM [Suspect]
     Active Substance: SULFAMETHOXAZOLE\TRIMETHOPRIM
     Dosage: 1 DF, QD
     Route: 048
     Dates: end: 201806
  16. BACTRIM [Suspect]
     Active Substance: SULFAMETHOXAZOLE\TRIMETHOPRIM
     Dosage: 1 DF, QD
     Route: 048
     Dates: end: 201806
  17. BACTRIM [Suspect]
     Active Substance: SULFAMETHOXAZOLE\TRIMETHOPRIM
     Dosage: 1 DF, QD
     Route: 048
     Dates: end: 201806
  18. BACTRIM [Suspect]
     Active Substance: SULFAMETHOXAZOLE\TRIMETHOPRIM
     Dosage: UNK UNK, QD
     Route: 048
     Dates: end: 201806
  19. LEUCOVORIN CALCIUM [Suspect]
     Active Substance: LEUCOVORIN CALCIUM
     Indication: Product used for unknown indication
     Dosage: UNK
     Route: 065
  20. LEUCOVORIN CALCIUM [Suspect]
     Active Substance: LEUCOVORIN CALCIUM
     Dosage: UNK
     Route: 065
  21. DEXAMETHASONE ACETATE [Suspect]
     Active Substance: DEXAMETHASONE ACETATE
     Indication: Product used for unknown indication
     Dosage: 1 DF, QW
     Route: 065
  22. ELIQUIS [Suspect]
     Active Substance: APIXABAN
     Dosage: 1 DF, QD
     Route: 048
  23. ELIQUIS [Suspect]
     Active Substance: APIXABAN
     Dosage: 1 DF, QD
     Route: 048
  24. ELIQUIS [Suspect]
     Active Substance: APIXABAN
     Dosage: 1 DF, QD
     Route: 048
  25. ELIQUIS [Suspect]
     Active Substance: APIXABAN
     Dosage: 1 DF, QD
     Route: 048
  26. ELIQUIS [Suspect]
     Active Substance: APIXABAN
     Indication: Urinary incontinence
     Dosage: 1 DF, QD
     Route: 065
  27. ELIQUIS [Suspect]
     Active Substance: APIXABAN
     Dosage: 1 DF, QD
     Route: 065
  28. ELIQUIS [Suspect]
     Active Substance: APIXABAN
     Dosage: 1 DF, QD
     Route: 065
  29. ELIQUIS [Suspect]
     Active Substance: APIXABAN
     Dosage: 1 DF, QD
     Route: 065
  30. ELIQUIS [Suspect]
     Active Substance: APIXABAN
     Dosage: 1 DF, QD
     Route: 065
  31. ELIQUIS [Suspect]
     Active Substance: APIXABAN
     Dosage: 1 DF, QD
     Route: 065
  32. ELIQUIS [Suspect]
     Active Substance: APIXABAN
     Dosage: 1 DF, QD1 DOSAGE FORM, QD (1 DF, 1X/DAY (QD))
     Route: 048
  33. ELIQUIS [Suspect]
     Active Substance: APIXABAN
     Dosage: 1 DF, BID
     Route: 048
  34. ELIQUIS [Suspect]
     Active Substance: APIXABAN
     Dosage: 1 DF, BID
     Route: 048
  35. ELIQUIS [Suspect]
     Active Substance: APIXABAN
     Dosage: 1 DF
     Route: 048
  36. ELIQUIS [Suspect]
     Active Substance: APIXABAN
     Dosage: 1 DF,1 DOSAGE FORM (NUMBER OF UNITS IN THE INTERVAL: 0.5 DEFINITION OF THE TIME INTERVAL UNIT: DAY)
     Route: 048
  37. ELIQUIS [Suspect]
     Active Substance: APIXABAN
     Dosage: 2 DF, QD
     Route: 048
  38. ELIQUIS [Suspect]
     Active Substance: APIXABAN
     Dosage: 2 DF, QD
     Route: 048
  39. ELIQUIS [Suspect]
     Active Substance: APIXABAN
     Dosage: 2 DF, QD
     Route: 065
  40. ELIQUIS [Suspect]
     Active Substance: APIXABAN
     Dosage: 2 DF, QD
     Route: 065
  41. ELIQUIS [Suspect]
     Active Substance: APIXABAN
     Dosage: 2 DF, QD
     Route: 065
  42. ELIQUIS [Suspect]
     Active Substance: APIXABAN
     Dosage: 2 DF, QD
     Route: 065
  43. ELIQUIS [Suspect]
     Active Substance: APIXABAN
     Dosage: 2 DF, QD
     Route: 065
  44. ELIQUIS [Suspect]
     Active Substance: APIXABAN
     Dosage: 2 DF, Q12H
     Route: 065
  45. ELIQUIS [Suspect]
     Active Substance: APIXABAN
     Dosage: 2 DF, BID
     Route: 048
  46. ELIQUIS [Suspect]
     Active Substance: APIXABAN
     Dosage: 2 DF, BID
     Route: 065
  47. ELIQUIS [Suspect]
     Active Substance: APIXABAN
     Dosage: 2 DF
     Route: 065
  48. ELIQUIS [Suspect]
     Active Substance: APIXABAN
     Dosage: 4 DF, QD
     Route: 065
  49. ELIQUIS [Suspect]
     Active Substance: APIXABAN
     Dosage: 4 DF, QD
     Route: 065
  50. ELIQUIS [Suspect]
     Active Substance: APIXABAN
     Dosage: 4 DF, QD
     Route: 065
  51. FOLIC ACID [Suspect]
     Active Substance: FOLIC ACID
     Indication: Product used for unknown indication
     Dosage: UNK
     Route: 065
  52. LACTULOSE [Suspect]
     Active Substance: LACTULOSE
     Dosage: 1 DF, QD
     Route: 065
  53. LACTULOSE [Suspect]
     Active Substance: LACTULOSE
     Indication: Product used for unknown indication
     Dosage: 2 DF, QD
     Route: 065
  54. LACTULOSE [Suspect]
     Active Substance: LACTULOSE
     Dosage: 2 DF, QD
     Route: 065
  55. LACTULOSE [Suspect]
     Active Substance: LACTULOSE
     Dosage: 2 DF, QD
     Route: 065
  56. LANSOPRAZOLE [Suspect]
     Active Substance: LANSOPRAZOLE
     Indication: Product used for unknown indication
     Dosage: 1 DF, QD
     Route: 065
  57. LANSOPRAZOLE [Suspect]
     Active Substance: LANSOPRAZOLE
     Dosage: 1 DF, QD
     Route: 065
  58. LANSOPRAZOLE [Suspect]
     Active Substance: LANSOPRAZOLE
     Dosage: UNK, QD
     Route: 065
  59. DEXAMETHASONE ACETATE [Suspect]
     Active Substance: DEXAMETHASONE ACETATE
     Dosage: 1 DF, QW
     Route: 065
  60. DEXAMETHASONE ACETATE [Suspect]
     Active Substance: DEXAMETHASONE ACETATE
     Dosage: 1 DF, QW
     Route: 065
  61. DEXAMETHASONE ACETATE [Suspect]
     Active Substance: DEXAMETHASONE ACETATE
     Indication: Product used for unknown indication
     Dosage: UNK, QW (1/WEEK)
     Route: 065
  62. ACETAMINOPHEN [Suspect]
     Active Substance: ACETAMINOPHEN
     Indication: Product used for unknown indication
     Dosage: 1 DF, QD
     Route: 065
  63. ACETAMINOPHEN [Suspect]
     Active Substance: ACETAMINOPHEN
     Dosage: 1 DF, QD
     Route: 065
  64. ACETAMINOPHEN [Suspect]
     Active Substance: ACETAMINOPHEN
     Dosage: 3 DF, QD,(1 DF, TID)
     Route: 065
  65. ACETAMINOPHEN [Suspect]
     Active Substance: ACETAMINOPHEN
     Dosage: 3 DF, TID (QD)
     Route: 065
  66. ACETAMINOPHEN [Suspect]
     Active Substance: ACETAMINOPHEN
     Dosage: 3 DF, TID (QD)
     Route: 065
  67. PREGABALIN [Suspect]
     Active Substance: PREGABALIN
     Indication: Product used for unknown indication
     Dosage: 1 DF, QD
     Route: 065
  68. PREGABALIN [Suspect]
     Active Substance: PREGABALIN
     Dosage: 1 DF, QD
     Route: 065
  69. PREGABALIN [Suspect]
     Active Substance: PREGABALIN
     Dosage: 1 DF, QD
     Route: 065
  70. PREGABALIN [Suspect]
     Active Substance: PREGABALIN
     Dosage: 1 DF, QD
     Route: 065
  71. PREGABALIN [Suspect]
     Active Substance: PREGABALIN
     Dosage: 2 DF, QD  (1 DF, BID)
     Route: 065
  72. PREGABALIN [Suspect]
     Active Substance: PREGABALIN
     Dosage: 2 DF, QD
     Route: 065
  73. TRAMADOL HYDROCHLORIDE [Suspect]
     Active Substance: TRAMADOL HYDROCHLORIDE
     Dosage: 200 MG, QD (1X/DAY (QD)
     Route: 048
     Dates: end: 201806
  74. TRAMADOL HYDROCHLORIDE [Suspect]
     Active Substance: TRAMADOL HYDROCHLORIDE
     Dosage: 200 MG1X/DAY (QD)
     Route: 048
     Dates: end: 201806
  75. TRAMADOL HYDROCHLORIDE [Suspect]
     Active Substance: TRAMADOL HYDROCHLORIDE
     Indication: Pain
     Dosage: 400 MG, QD
     Route: 048
     Dates: start: 201604, end: 201806
  76. TRAMADOL HYDROCHLORIDE [Suspect]
     Active Substance: TRAMADOL HYDROCHLORIDE
     Dosage: UNK, QD
     Route: 065
  77. TRAMADOL HYDROCHLORIDE [Suspect]
     Active Substance: TRAMADOL HYDROCHLORIDE
     Dosage: UNK, TID
     Route: 048
  78. TRAMADOL HYDROCHLORIDE [Suspect]
     Active Substance: TRAMADOL HYDROCHLORIDE
     Dosage: UNK
     Route: 048
  79. TRAMADOL HYDROCHLORIDE [Suspect]
     Active Substance: TRAMADOL HYDROCHLORIDE
     Dosage: UNKUNK (0.33 TIMES A DAY)
     Route: 065
  80. VALACYCLOVIR HYDROCHLORIDE [Suspect]
     Active Substance: VALACYCLOVIR HYDROCHLORIDE
     Indication: Infection prophylaxis
     Route: 065
  81. VALACYCLOVIR HYDROCHLORIDE [Suspect]
     Active Substance: VALACYCLOVIR HYDROCHLORIDE
     Indication: Infection prophylaxis
     Route: 065
  82. VALACYCLOVIR HYDROCHLORIDE [Suspect]
     Active Substance: VALACYCLOVIR HYDROCHLORIDE
     Indication: Infection prophylaxis
     Dosage: 500 MG, QD
     Route: 048
     Dates: end: 201806
  83. VESICARE [Suspect]
     Active Substance: SOLIFENACIN SUCCINATE
     Indication: Urinary incontinence
     Dosage: 10 MG, QD
     Route: 048
     Dates: end: 201806
  84. ZOPICLONE [Suspect]
     Active Substance: ZOPICLONE
     Indication: Product used for unknown indication
     Dosage: 1 DF, QD
     Route: 065
  85. ZOPICLONE [Suspect]
     Active Substance: ZOPICLONE
     Dosage: 1 DF, QD
     Route: 065
  86. ZOPICLONE [Suspect]
     Active Substance: ZOPICLONE
     Dosage: 1 DF, QD,(1 DF, 1X1 DAY)
     Route: 065

REACTIONS (8)
  - Blood pressure decreased [Unknown]
  - Coma [Recovered/Resolved]
  - Epilepsy [Recovered/Resolved]
  - Overdose [Recovered/Resolved]
  - Somnolence [Recovered/Resolved]
  - Confusional state [Recovered/Resolved]
  - Drug intolerance [Unknown]
  - Off label use [Unknown]

NARRATIVE: CASE EVENT DATE: 20180607
